FAERS Safety Report 15405740 (Version 2)
Quarter: 2018Q4

REPORT INFORMATION
  Report Type: Report from Study
  Country: US (occurrence: US)
  Receive Date: 20180920
  Receipt Date: 20181119
  Transmission Date: 20190204
  Serious: Yes (Other)
  Sender: FDA-Public Use
  Company Number: US-HTU-2016US016221

PATIENT
  Sex: Female

DRUGS (16)
  1. COREG [Concomitant]
     Active Substance: CARVEDILOL
  2. SYNTHROID [Concomitant]
     Active Substance: LEVOTHYROXINE SODIUM
  3. LUTEIN [Concomitant]
     Active Substance: LUTEIN
  4. ASPIRIN. [Concomitant]
     Active Substance: ASPIRIN
  5. CHROMIUM PICOLINATE [Concomitant]
     Active Substance: CHROMIUM PICOLINATE
  6. VALCHLOR [Suspect]
     Active Substance: MECHLORETHAMINE
     Indication: MYCOSIS FUNGOIDES
     Dosage: DAILY MON-FRI ONLY
     Route: 061
     Dates: start: 20160126
  7. VALCHLOR [Suspect]
     Active Substance: MECHLORETHAMINE
     Dosage: THIN FILM ONCE DAILY
     Dates: start: 20160126
  8. VITAMIN D3 [Concomitant]
     Active Substance: CHOLECALCIFEROL
  9. NEURONTIN [Concomitant]
     Active Substance: GABAPENTIN
  10. VITAMIN B6 [Concomitant]
     Active Substance: PYRIDOXINE HYDROCHLORIDE
  11. MULTIVITAMINS, PLAIN [Concomitant]
     Active Substance: VITAMINS
  12. ATORVASTATIN [Concomitant]
     Active Substance: ATORVASTATIN
  13. FOLIC ACID. [Concomitant]
     Active Substance: FOLIC ACID
  14. CALCIUM MAGNESIUM ZINC [Concomitant]
     Active Substance: CALCIUM\MAGNESIUM\ZINC
  15. FISH OIL [Concomitant]
     Active Substance: FISH OIL
  16. PLAVIX [Concomitant]
     Active Substance: CLOPIDOGREL BISULFATE

REACTIONS (6)
  - Mycosis fungoides [Not Recovered/Not Resolved]
  - Malignant neoplasm progression [Unknown]
  - Skin disorder [Unknown]
  - Disease progression [Not Recovered/Not Resolved]
  - Therapy non-responder [Unknown]
  - Skin discolouration [Unknown]
